FAERS Safety Report 5285883-8 (Version None)
Quarter: 2007Q2

REPORT INFORMATION
  Report Type: 
  Country: None (occurrence: None)
  Receive Date: 20070404
  Receipt Date: 20070322
  Transmission Date: 20071010
  Serious: Yes (Other)
  Sender: FDA-Public Use
  Company Number: GB-SANOFI-SYNTHELABO-A01200703107

PATIENT
  Age: 23 Year
  Sex: Female

DRUGS (6)
  1. SUMATRIPTAN SUCCINATE [Concomitant]
     Indication: MIGRAINE
     Route: 048
     Dates: start: 20041007
  2. SERTRALINE [Concomitant]
     Indication: DEPRESSION
     Route: 048
     Dates: start: 20050125
  3. OXYTETRACYCLINE [Concomitant]
     Indication: ACNE
     Route: 048
     Dates: start: 20040209, end: 20050112
  4. MIRTAZAPINE [Concomitant]
     Indication: DEPRESSION
     Route: 048
     Dates: start: 20050121, end: 20050125
  5. DOXYCYCLINE [Concomitant]
     Indication: ACNE
     Route: 048
     Dates: start: 20050113, end: 20050401
  6. ZOLPIDEM [Suspect]
     Indication: INSOMNIA
     Dosage: 10 MG
     Route: 048
     Dates: start: 20020909, end: 20050317

REACTIONS (3)
  - MEMORY IMPAIRMENT [None]
  - SLEEP TALKING [None]
  - SLEEP WALKING [None]
